FAERS Safety Report 5640029-9 (Version None)
Quarter: 2008Q1

REPORT INFORMATION
  Report Type: 
  Country: None (occurrence: None)
  Receive Date: 20080227
  Receipt Date: 20080201
  Transmission Date: 20080703
  Serious: No
  Sender: FDA-Public Use
  Company Number: US-BAYER-US-2007-042150

PATIENT
  Age: 31 Year
  Sex: Female
  Weight: 65 kg

DRUGS (2)
  1. YAZ [Suspect]
     Indication: ORAL CONTRACEPTION
     Route: 048
     Dates: start: 20070922
  2. YAZ [Suspect]
     Route: 048
     Dates: start: 20070501

REACTIONS (3)
  - AMENORRHOEA [None]
  - RASH PRURITIC [None]
  - VAGINAL HAEMORRHAGE [None]
